FAERS Safety Report 20022845 (Version 3)
Quarter: 2021Q4

REPORT INFORMATION
  Report Type: Report from Study
  Country: LB (occurrence: LB)
  Receive Date: 20211102
  Receipt Date: 20211125
  Transmission Date: 20220303
  Serious: Yes (Hospitalization)
  Sender: FDA-Public Use
  Company Number: LB-NOVARTISPH-NVSC2021LB244286

PATIENT
  Age: 52 Year
  Sex: Female
  Weight: 90 kg

DRUGS (3)
  1. SANDOSTATIN LAR DEPOT [Suspect]
     Active Substance: OCTREOTIDE ACETATE
     Indication: Neuroendocrine tumour
     Dosage: UNK, Q4W
     Route: 030
     Dates: start: 20190916
  2. SANDOSTATIN LAR DEPOT [Suspect]
     Active Substance: OCTREOTIDE ACETATE
  3. SANDOSTATIN LAR DEPOT [Suspect]
     Active Substance: OCTREOTIDE ACETATE

REACTIONS (10)
  - Blood albumin increased [Recovered/Resolved]
  - Generalised oedema [Recovering/Resolving]
  - Product supply issue [Unknown]
  - Dysphagia [Unknown]
  - Odynophagia [Unknown]
  - Dysarthria [Unknown]
  - Pyrexia [Unknown]
  - Oedema [Unknown]
  - Dyspnoea [Unknown]
  - Abdominal distension [Unknown]

NARRATIVE: CASE EVENT DATE: 20211001
